FAERS Safety Report 6396450-7 (Version None)
Quarter: 2009Q4

REPORT INFORMATION
  Report Type: 
  Country: None (occurrence: None)
  Receive Date: 20091012
  Receipt Date: 20091001
  Transmission Date: 20100525
  Serious: Yes (Disabling)
  Sender: FDA-Public Use
  Company Number: AU-ASTRAZENECA-2009SE13957

PATIENT
  Age: 25652 Day
  Sex: Male

DRUGS (5)
  1. CRESTOR [Suspect]
     Indication: HYPERCHOLESTEROLAEMIA
     Route: 048
     Dates: start: 20090201
  2. ASASANTIN SR [Suspect]
     Indication: AMNESIA
     Route: 048
     Dates: start: 20090101
  3. ASASANTIN SR [Suspect]
     Indication: ANAEMIA
     Route: 048
     Dates: start: 20090101
  4. EZETROL [Suspect]
  5. VIBROMYSIN [Concomitant]
     Indication: UPPER RESPIRATORY TRACT INFECTION

REACTIONS (2)
  - ORTHOSTATIC HYPOTENSION [None]
  - VISUAL IMPAIRMENT [None]
